FAERS Safety Report 9569234 (Version 2)
Quarter: 2013Q3

REPORT INFORMATION
  Report Type: Spontaneous
  Country: US (occurrence: US)
  Receive Date: 20130930
  Receipt Date: 20130930
  Transmission Date: 20140515
  Serious: No
  Sender: FDA-Public Use
  Company Number: US-AMGEN-USASP2013028041

PATIENT
  Age: 47 Year
  Sex: Female
  Weight: 53.97 kg

DRUGS (11)
  1. ENBREL [Suspect]
     Indication: RHEUMATOID ARTHRITIS
     Dosage: 50 MG, QWK
     Route: 058
     Dates: start: 20130118, end: 201303
  2. PLAQUENIL                          /00072602/ [Concomitant]
     Dosage: 200 MG, UNK
  3. METHOTREXATE [Concomitant]
     Dosage: 2.5 MG, UNK
  4. ZITHROMAX [Concomitant]
     Dosage: 500 MG, UNK
  5. SIMVASTATIN [Concomitant]
     Dosage: 5 MG, UNK
  6. LEVOTHYROXINE [Concomitant]
     Dosage: 50 MUG, UNK
  7. METHYLPREDNISOLON                  /00049601/ [Concomitant]
     Dosage: 40 MG/ML, UNK
  8. FISH OIL [Concomitant]
     Dosage: UNK
  9. VITAMIN D                          /00107901/ [Concomitant]
     Dosage: 1000 UNIT, UNK
  10. FOLIC ACID [Concomitant]
     Dosage: UNK
  11. NAPROXEN [Concomitant]
     Dosage: 375 MG, UNK

REACTIONS (5)
  - Drug ineffective [Unknown]
  - Pain in extremity [Not Recovered/Not Resolved]
  - Arthralgia [Not Recovered/Not Resolved]
  - Joint swelling [Not Recovered/Not Resolved]
  - Local swelling [Not Recovered/Not Resolved]
